FAERS Safety Report 17776527 (Version 1)
Quarter: 2020Q2

REPORT INFORMATION
  Report Type: Spontaneous
  Country: US (occurrence: US)
  Receive Date: 20200513
  Receipt Date: 20200513
  Transmission Date: 20200714
  Serious: Yes (Hospitalization, Disabling, Other)
  Sender: FDA-Public Use
  Company Number: US-009507513-1806USA009497

PATIENT
  Sex: Male
  Weight: 102.95 kg

DRUGS (7)
  1. ZOSTAVAX [Suspect]
     Active Substance: VARICELLA-ZOSTER VIRUS STRAIN OKA/MERCK LIVE ANTIGEN
     Indication: PROPHYLAXIS
     Route: 058
     Dates: start: 20140113, end: 20140113
  2. AMLODIPINE BESYLATE. [Concomitant]
     Active Substance: AMLODIPINE BESYLATE
     Indication: HYPERTENSION
     Dosage: UNK
     Dates: start: 2000
  3. COZAAR [Concomitant]
     Active Substance: LOSARTAN POTASSIUM
     Indication: HYPERTENSION
     Dosage: UNK
     Dates: start: 2000
  4. STERILE DILUENT (WATER) [Suspect]
     Active Substance: WATER
     Indication: ROUTINE HEALTH MAINTENANCE
  5. APIXABAN [Concomitant]
     Active Substance: APIXABAN
     Indication: THROMBOSIS PROPHYLAXIS
     Dosage: UNK
     Dates: start: 2000
  6. ZOSTAVAX [Suspect]
     Active Substance: VARICELLA-ZOSTER VIRUS STRAIN OKA/MERCK LIVE ANTIGEN
     Indication: ROUTINE HEALTH MAINTENANCE
  7. STERILE DILUENT (WATER) [Suspect]
     Active Substance: WATER
     Indication: PROPHYLAXIS
     Dosage: UNK, ONCE
     Route: 058
     Dates: start: 20140113, end: 20140113

REACTIONS (42)
  - Acute kidney injury [Unknown]
  - Back pain [Unknown]
  - Benign prostatic hyperplasia [Not Recovered/Not Resolved]
  - Dry eye [Not Recovered/Not Resolved]
  - Disseminated varicella zoster vaccine virus infection [Unknown]
  - Herpes zoster oticus [Unknown]
  - Obesity [Unknown]
  - Chalazion [Recovered/Resolved]
  - Influenza like illness [Unknown]
  - Actinic keratosis [Not Recovered/Not Resolved]
  - Bronchitis [Unknown]
  - Ear infection [Not Recovered/Not Resolved]
  - Vaccination failure [Unknown]
  - Dermal cyst [Unknown]
  - Anxiety [Unknown]
  - Asthma [Not Recovered/Not Resolved]
  - Depression [Not Recovered/Not Resolved]
  - Hyperhidrosis [Unknown]
  - Insomnia [Unknown]
  - Malaise [Unknown]
  - Herpes zoster [Unknown]
  - Meibomian gland dysfunction [Not Recovered/Not Resolved]
  - Atrial fibrillation [Recovered/Resolved]
  - Blood calcium decreased [Not Recovered/Not Resolved]
  - Haematuria [Unknown]
  - Head injury [Recovered/Resolved]
  - Retroperitoneal haemorrhage [Unknown]
  - Gastrointestinal disorder [Not Recovered/Not Resolved]
  - Mood altered [Not Recovered/Not Resolved]
  - Post herpetic neuralgia [Recovering/Resolving]
  - Hypersensitivity [Not Recovered/Not Resolved]
  - Radius fracture [Unknown]
  - Sinus bradycardia [Unknown]
  - Tonsillar hypertrophy [Unknown]
  - Urinary tract infection [Unknown]
  - Hypothyroidism [Unknown]
  - Cataract [Unknown]
  - Infection [Not Recovered/Not Resolved]
  - Sleep apnoea syndrome [Unknown]
  - Eye infection [Unknown]
  - Tendonitis [Unknown]
  - Face injury [Recovered/Resolved]

NARRATIVE: CASE EVENT DATE: 2014
